FAERS Safety Report 9103221 (Version 3)
Quarter: 2013Q2

REPORT INFORMATION
  Report Type: Report from Study
  Country: AR (occurrence: AR)
  Receive Date: 20130219
  Receipt Date: 20130612
  Transmission Date: 20140414
  Serious: Yes (Death, Hospitalization, Other)
  Sender: FDA-Public Use
  Company Number: PHHY2013AR016022

PATIENT
  Sex: Female

DRUGS (1)
  1. ONBREZ [Suspect]

REACTIONS (4)
  - Lung disorder [Fatal]
  - Lung neoplasm malignant [Unknown]
  - Bronchial disorder [Not Recovered/Not Resolved]
  - Pneumonia [Unknown]
